FAERS Safety Report 12141886 (Version 1)
Quarter: 2016Q1

REPORT INFORMATION
  Report Type: Report from Study
  Country: BR (occurrence: BR)
  Receive Date: 20160303
  Receipt Date: 20160303
  Transmission Date: 20160526
  Serious: Yes (Other)
  Sender: FDA-Public Use
  Company Number: PHHY2016BR027349

PATIENT
  Sex: Female
  Weight: 29 kg

DRUGS (1)
  1. OMNITROPE [Suspect]
     Active Substance: SOMATROPIN
     Indication: SMALL FOR DATES BABY
     Dosage: 1.4 MG, QD
     Route: 058
     Dates: start: 201602

REACTIONS (2)
  - Dengue fever [Unknown]
  - Administration site pain [Recovered/Resolved]
